FAERS Safety Report 8623610-4 (Version None)
Quarter: 2012Q3

REPORT INFORMATION
  Report Type: 
  Country: None (occurrence: None)
  Receive Date: 20120827
  Receipt Date: 20120814
  Transmission Date: 20120928
  Serious: Yes (Other)
  Sender: FDA-Public Use
  Company Number: US-ASTELLAS-2012US006041

PATIENT
  Sex: Male
  Weight: 102 kg

DRUGS (12)
  1. VITAMIN D [Concomitant]
     Indication: PRODUCT USED FOR UNKNOWN INDICATION
     Dosage: 2000 U, UID/QD
     Route: 048
  2. VESICARE [Suspect]
     Indication: LOWER URINARY TRACT SYMPTOMS
  3. ASPIRIN [Concomitant]
     Indication: PRODUCT USED FOR UNKNOWN INDICATION
     Dosage: 81 MG, UID/QD
     Route: 048
  4. VESICARE [Suspect]
     Indication: BENIGN PROSTATIC HYPERPLASIA
     Dosage: 5 MG, UID/QD
     Route: 048
     Dates: start: 20091201
  5. PRAVASTATIN [Concomitant]
     Indication: PRODUCT USED FOR UNKNOWN INDICATION
     Dosage: 20 MG, QHS
     Route: 048
  6. METFORMIN HCL [Concomitant]
     Indication: PRODUCT USED FOR UNKNOWN INDICATION
     Dosage: 1000 MG, BID
     Route: 048
  7. VESICARE [Suspect]
     Indication: MICTURITION URGENCY
  8. VESICARE [Suspect]
     Indication: URGE INCONTINENCE
  9. LORTAB [Concomitant]
     Indication: PAIN
     Dosage: 6-500 MG
     Route: 048
  10. VESICARE [Suspect]
     Indication: URINARY TRACT OBSTRUCTION
  11. VESICARE [Suspect]
     Indication: POLLAKIURIA
  12. BUPROPION HCL [Concomitant]
     Indication: PRODUCT USED FOR UNKNOWN INDICATION
     Dosage: 100 MG, BID
     Route: 048

REACTIONS (4)
  - OFF LABEL USE [None]
  - RENAL CYST [None]
  - DIABETIC NEPHROPATHY [None]
  - PROTEINURIA [None]
